FAERS Safety Report 4322053-1 (Version None)
Quarter: 2004Q1

REPORT INFORMATION
  Report Type: 
  Country: None (occurrence: None)
  Receive Date: 20040319
  Receipt Date: 20040304
  Transmission Date: 20041129
  Serious: Yes (Hospitalization)
  Sender: FDA-Public Use
  Company Number: KII-2001-0007439

PATIENT
  Age: 49 Year
  Sex: Male

DRUGS (2)
  1. OXYCONTIN [Suspect]
     Indication: PAIN
     Dosage: 40 MG, BID, UNKNOWN
  2. STOOL SOFTENER [Concomitant]

REACTIONS (2)
  - INTESTINAL OBSTRUCTION [None]
  - TREATMENT NONCOMPLIANCE [None]
